FAERS Safety Report 5345853-8 (Version None)
Quarter: 2007Q2

REPORT INFORMATION
  Report Type: 
  Country: None (occurrence: None)
  Receive Date: 20070426
  Receipt Date: 20060825
  Transmission Date: 20071010
  Serious: Yes (Death)
  Sender: FDA-Public Use
  Company Number: US-JNJFOC-20060705679

PATIENT
  Age: 63 Year
  Sex: Female
  Weight: 83.4619 kg

DRUGS (10)
  1. ULTRAM [Suspect]
     Indication: PAIN
     Dosage: 50 MG, 4 IN 1 DAY, ORAL
     Route: 048
     Dates: start: 20060710, end: 20060711
  2. DIOVAN [Concomitant]
  3. ALBUTEROL [Concomitant]
  4. ASPIRIN [Concomitant]
  5. HYDRALAZINE HCL [Concomitant]
  6. HYDROCHLOROTHIAZIDE [Concomitant]
  7. RANITIDINE [Concomitant]
  8. DESONIDE 0.05% (DESONIDE) [Concomitant]
  9. CLOBETASOL PROPIONATE 0.05% (CLOBETASOL PROPIONATE) [Concomitant]
  10. ENBREL [Concomitant]

REACTIONS (1)
  - DEATH [None]
